FAERS Safety Report 6249866-3 (Version None)
Quarter: 2009Q2

REPORT INFORMATION
  Report Type: 
  Country: None (occurrence: None)
  Receive Date: 20090629
  Receipt Date: 20090617
  Transmission Date: 20091009
  Serious: Yes (Hospitalization)
  Sender: FDA-Public Use
  Company Number: BR-PFIZER INC-2009229179

PATIENT
  Age: 36 Year

DRUGS (6)
  1. VIAGRA [Suspect]
     Indication: CARDIAC FAILURE CONGESTIVE
     Dosage: 50 MG, 3X/DAY
     Dates: start: 20050901
  2. BOSENTAN [Concomitant]
     Dosage: UNK
  3. AMIODARONE [Concomitant]
     Dosage: UNK
  4. FUROSEMIDE [Concomitant]
     Dosage: UNK
  5. WARFARIN SODIUM [Concomitant]
     Dosage: UNK
  6. OXYGEN [Concomitant]

REACTIONS (2)
  - MALAISE [None]
  - RESPIRATORY FAILURE [None]
